FAERS Safety Report 14037315 (Version 1)
Quarter: 2017Q4

REPORT INFORMATION
  Report Type: Spontaneous
  Country: US (occurrence: None)
  Receive Date: 20171003
  Receipt Date: 20171003
  Transmission Date: 20180321
  Serious: Yes (Hospitalization)
  Sender: FDA-Public Use
  Company Number: None

PATIENT
  Age: 64 Year
  Sex: Female

DRUGS (15)
  1. RANITIDINE. [Concomitant]
     Active Substance: RANITIDINE
  2. ATORVASTATIN [Concomitant]
     Active Substance: ATORVASTATIN
  3. TYLENOL [Concomitant]
     Active Substance: ACETAMINOPHEN
  4. CAPECITABINE 500 MG [Suspect]
     Active Substance: CAPECITABINE
     Indication: RECTAL CANCER
     Dosage: 2000MG QD/AM PO?1500MG QD/PM PO
     Route: 048
     Dates: start: 20170808
  5. PROCHLORPER [Concomitant]
  6. PANTOPRAZOLE [Concomitant]
     Active Substance: PANTOPRAZOLE
  7. LISINOPRIL AND HYDROCHLOROTHIAZIDE [Concomitant]
     Active Substance: HYDROCHLOROTHIAZIDE\LISINOPRIL
  8. CITALOPRAM [Concomitant]
     Active Substance: CITALOPRAM HYDROBROMIDE
  9. CARB/LEVO [Concomitant]
     Active Substance: CARBIDOPA\LEVODOPA
  10. PROBIOTIC [Concomitant]
     Active Substance: PROBIOTICS NOS
  11. ENALAPRIL [Concomitant]
     Active Substance: ENALAPRIL
  12. ALLERGY RELF [Concomitant]
  13. LORATADINE. [Concomitant]
     Active Substance: LORATADINE
  14. FLUTICASONE. [Concomitant]
     Active Substance: FLUTICASONE
  15. FAMOTIDINE. [Concomitant]
     Active Substance: FAMOTIDINE

REACTIONS (5)
  - Blood pressure increased [None]
  - Hypoaesthesia [None]
  - Dysarthria [None]
  - Malaise [None]
  - Nausea [None]

NARRATIVE: CASE EVENT DATE: 20170925
